FAERS Safety Report 6735132-6 (Version None)
Quarter: 2010Q2

REPORT INFORMATION
  Report Type: 
  Country: None (occurrence: None)
  Receive Date: 20100521
  Receipt Date: 20100514
  Transmission Date: 20101027
  Serious: Yes (Hospitalization)
  Sender: FDA-Public Use
  Company Number: US-JNJFOC-20100505670

PATIENT
  Sex: Female
  Weight: 82.56 kg

DRUGS (3)
  1. FENTANYL CITRATE [Suspect]
     Indication: BACK PAIN
     Route: 062
     Dates: start: 20060101, end: 20100501
  2. FENTANYL CITRATE [Suspect]
     Dosage: NDC # 0781-7243-55
     Route: 062
  3. UNKNOWN MULTIPLE MEDICATION [Concomitant]
     Route: 065

REACTIONS (4)
  - ABDOMINAL DISCOMFORT [None]
  - DIABETES MELLITUS [None]
  - DRUG INEFFECTIVE [None]
  - NEOPLASM MALIGNANT [None]
